FAERS Safety Report 9407898 (Version 1)
Quarter: 2013Q3

REPORT INFORMATION
  Report Type: Spontaneous
  Country: US (occurrence: US)
  Receive Date: 20130718
  Receipt Date: 20130718
  Transmission Date: 20140515
  Serious: Yes (Other)
  Sender: FDA-Public Use
  Company Number: US-MYLANLABS-2013S1015164

PATIENT
  Age: 13 Month
  Sex: 0
  Weight: 10.6 kg

DRUGS (1)
  1. MELPHALAN [Suspect]
     Indication: CONGENITAL RETINOBLASTOMA
     Dosage: 3MG PER EYE
     Route: 013

REACTIONS (2)
  - Vitreous haemorrhage [Unknown]
  - Cataract [Unknown]
